FAERS Safety Report 9312275 (Version 3)
Quarter: 2013Q3

REPORT INFORMATION
  Report Type: Spontaneous
  Country: US (occurrence: US)
  Receive Date: 20130528
  Receipt Date: 20130815
  Transmission Date: 20140515
  Serious: Yes (Other)
  Sender: FDA-Public Use
  Company Number: PHEH2013US011410

PATIENT
  Sex: Female
  Weight: 56 kg

DRUGS (2)
  1. TEGRETOL [Suspect]
     Indication: TRIGEMINAL NEURALGIA
     Dosage: 0.5 DF, BID
     Route: 048
     Dates: start: 20120215, end: 20120225
  2. NEURONTIN [Suspect]
     Dosage: UNK UKN, UNK

REACTIONS (9)
  - Transient ischaemic attack [Recovering/Resolving]
  - Disorientation [Recovering/Resolving]
  - Nasal septum perforation [Recovering/Resolving]
  - Epistaxis [Recovering/Resolving]
  - Hypertension [Recovered/Resolved]
  - Skin disorder [Recovered/Resolved]
  - Rash [Recovered/Resolved]
  - Rhinitis [Recovering/Resolving]
  - Urticaria [Recovering/Resolving]
